FAERS Safety Report 9940637 (Version 2)
Quarter: 2014Q1

REPORT INFORMATION
  Report Type: Report from Study
  Country: JP (occurrence: JP)
  Receive Date: 20140303
  Receipt Date: 20140306
  Transmission Date: 20141002
  Serious: Yes (Hospitalization)
  Sender: FDA-Public Use
  Company Number: JP-PFIZER INC-2014055790

PATIENT
  Age: 42 Year
  Sex: Female
  Weight: 56.5 kg

DRUGS (8)
  1. CRIZOTINIB [Suspect]
     Indication: NON-SMALL CELL LUNG CANCER
     Dosage: 250 MG, 2X/DAY
     Route: 048
     Dates: start: 20130712, end: 20131210
  2. AMLODIPINE [Concomitant]
     Dosage: 5 MG, 1X/DAY
     Route: 048
  3. OLMETEC [Concomitant]
     Dosage: 40 MG, 1X/DAY
     Route: 048
  4. LUNESTA [Concomitant]
     Dosage: 1 MG, 1X/DAY
     Route: 048
     Dates: start: 20130820
  5. MEIACT MS [Concomitant]
     Dosage: 100 MG, 3X/DAY
     Route: 048
     Dates: start: 20131029, end: 20131104
  6. ZITHROMAC [Concomitant]
     Dosage: 500 MG, 1X/DAY
     Route: 048
     Dates: start: 20131029, end: 20131031
  7. TERPERAN [Concomitant]
     Dosage: UNK
     Route: 048
     Dates: start: 20131104, end: 20131108
  8. PARIET [Concomitant]
     Dosage: 10 MG, 1X/DAY
     Route: 048
     Dates: start: 20131104, end: 20131110

REACTIONS (1)
  - Pneumonia [Recovered/Resolved]
